FAERS Safety Report 16893891 (Version 6)
Quarter: 2022Q1

REPORT INFORMATION
  Report Type: Report from Study
  Country: US (occurrence: None)
  Receive Date: 20191008
  Receipt Date: 20220207
  Transmission Date: 20220423
  Serious: Yes (Death, Other)
  Sender: FDA-Public Use
  Company Number: US-ROCHE-2427082

PATIENT
  Age: 50 Year
  Sex: Female
  Weight: 45.1 kg

DRUGS (4)
  1. ATEZOLIZUMAB [Suspect]
     Active Substance: ATEZOLIZUMAB
     Indication: Pleural mesothelioma malignant
     Route: 042
     Dates: start: 20190312
  2. ATEZOLIZUMAB [Suspect]
     Active Substance: ATEZOLIZUMAB
     Dosage: ON 03/APR/2019, PATIENT RECEIVED MOST RECENT DOSE.?ON 19/FEB/2019, PATIENT RECEIVED MOST RECENT DOSE
     Route: 042
     Dates: start: 20190129
  3. CISPLATIN [Suspect]
     Active Substance: CISPLATIN
     Indication: Pleural mesothelioma malignant
     Dosage: ON 03/APR/2019, PATIENT RECEIVED MOST RECENT DOSE.?ON 19/FEB/2019, PATIENT RECEIVED MOST RECENT DOSE
     Route: 065
     Dates: start: 20190129
  4. PEMETREXED [Suspect]
     Active Substance: PEMETREXED
     Indication: Pleural mesothelioma malignant
     Dosage: ON 03/APR/2019, PATIENT RECEIVED MOST RECENT DOSE.?ON 19/FEB/2019, PATIENT RECEIVED MOST RECENT DOSE
     Route: 065
     Dates: start: 20190129

REACTIONS (5)
  - Lymphocyte count decreased [Unknown]
  - Pleuritic pain [Unknown]
  - Death [Fatal]
  - Infusion related reaction [Recovered/Resolved]
  - Anaemia [Unknown]

NARRATIVE: CASE EVENT DATE: 20190728
